FAERS Safety Report 7720955-7 (Version None)
Quarter: 2011Q3

REPORT INFORMATION
  Report Type: 
  Country: None (occurrence: None)
  Receive Date: 20110825
  Receipt Date: 20110812
  Transmission Date: 20111222
  Serious: Yes (Hospitalization)
  Sender: FDA-Public Use
  Company Number: 15932551

PATIENT
  Age: 53 Year
  Sex: Female

DRUGS (5)
  1. PLACEBO [Suspect]
     Indication: EMBOLISM
     Dates: start: 20110623
  2. APIXABAN [Suspect]
     Indication: EMBOLISM
     Dosage: 5 MILLIGRAM 1 DAY
     Dates: start: 20110623
  3. ENOXAPARIN SODIUM [Concomitant]
  4. WARFARIN SODIUM [Suspect]
     Indication: EMBOLISM
     Dosage: 6 MILLIGRAM 1 DAY
     Dates: start: 20110623
  5. ENOXAPARIN SODIUM [Suspect]
     Indication: EMBOLISM
     Dosage: 220 MILLIGRAM
     Dates: start: 20110623

REACTIONS (2)
  - MENORRHAGIA [None]
  - HAEMOGLOBIN DECREASED [None]
